FAERS Safety Report 12195069 (Version 1)
Quarter: 2016Q1

REPORT INFORMATION
  Report Type: Spontaneous
  Country: US (occurrence: US)
  Receive Date: 20160321
  Receipt Date: 20160321
  Transmission Date: 20160526
  Serious: No
  Sender: FDA-Public Use
  Company Number: US-TEVA-630736USA

PATIENT
  Sex: Male

DRUGS (1)
  1. ESCITALOPRAM [Suspect]
     Active Substance: ESCITALOPRAM OXALATE
     Indication: GENERALISED ANXIETY DISORDER
     Route: 065

REACTIONS (7)
  - Product substitution issue [Unknown]
  - Decreased appetite [Unknown]
  - Vomiting [Unknown]
  - Panic attack [Unknown]
  - Nausea [Unknown]
  - Retching [Unknown]
  - Drug ineffective [Unknown]
